FAERS Safety Report 8875399 (Version 14)
Quarter: 2014Q3

REPORT INFORMATION
  Report Type: Spontaneous
  Country: US (occurrence: US)
  Receive Date: 20121023
  Receipt Date: 20140903
  Transmission Date: 20150326
  Serious: Yes (Life-Threatening, Hospitalization, Other)
  Sender: FDA-Public Use
  Company Number: US-009507513-1210USA004995

PATIENT
  Sex: Female
  Weight: 57.14 kg

DRUGS (1)
  1. NUVARING [Suspect]
     Active Substance: ETHINYL ESTRADIOL\ETONOGESTREL
     Indication: CONTRACEPTION
     Dosage: UNK
     Route: 067
     Dates: start: 20120804, end: 20120911

REACTIONS (11)
  - Pulmonary embolism [Recovered/Resolved]
  - Pneumonia [Unknown]
  - Dyspnoea exertional [Recovering/Resolving]
  - Adjustment disorder with anxiety [Unknown]
  - Stress [Unknown]
  - Oropharyngeal pain [Unknown]
  - Menorrhagia [Recovered/Resolved]
  - Pulmonary embolism [Unknown]
  - Acute sinusitis [Unknown]
  - Depression [Unknown]
  - Speech disorder [Unknown]

NARRATIVE: CASE EVENT DATE: 2012
